FAERS Safety Report 14187958 (Version 2)
Quarter: 2017Q4

REPORT INFORMATION
  Report Type: Report from Study
  Country: BE (occurrence: BE)
  Receive Date: 20171114
  Receipt Date: 20171201
  Transmission Date: 20180321
  Serious: Yes (Other)
  Sender: FDA-Public Use
  Company Number: PHHY2014BE002577

PATIENT
  Age: 52 Year
  Sex: Male

DRUGS (3)
  1. GILENYA [Suspect]
     Active Substance: FINGOLIMOD HYDROCHLORIDE
     Indication: MULTIPLE SCLEROSIS
     Dosage: 0.5 MG, QD
     Route: 048
     Dates: start: 20130809, end: 20160705
  2. EFEXOR [Concomitant]
     Active Substance: VENLAFAXINE HYDROCHLORIDE
     Indication: PRODUCT USED FOR UNKNOWN INDICATION
     Dosage: 150 MG, QD
     Route: 065
  3. WELLBUTRIN [Concomitant]
     Active Substance: BUPROPION HYDROCHLORIDE
     Indication: PRODUCT USED FOR UNKNOWN INDICATION
     Dosage: UNK, QD
     Route: 065

REACTIONS (12)
  - Radiculopathy [Unknown]
  - Gamma-glutamyltransferase increased [Unknown]
  - Pharyngitis [Unknown]
  - Herpes zoster [Unknown]
  - Alanine aminotransferase increased [Unknown]
  - Herpes zoster cutaneous disseminated [Recovered/Resolved]
  - Bronchitis [Unknown]
  - Low density lipoprotein increased [Unknown]
  - Monoparesis [Unknown]
  - Vertigo [Unknown]
  - Blister [Unknown]
  - Blood cholesterol increased [Unknown]

NARRATIVE: CASE EVENT DATE: 20140101
